FAERS Safety Report 7224617-4 (Version None)
Quarter: 2011Q1

REPORT INFORMATION
  Report Type: 
  Country: None (occurrence: None)
  Receive Date: 20110106
  Receipt Date: 20110106
  Transmission Date: 20110831
  Serious: Yes (Hospitalization)
  Sender: FDA-Public Use
  Company Number: None

PATIENT
  Age: 42 Year
  Sex: Male
  Weight: 81.4 kg

DRUGS (4)
  1. VANCOMYCIN [Suspect]
     Indication: OSTEOMYELITIS
     Dosage: 1GM Q24HR IVPB RECENT
     Route: 042
  2. VANCOMYCIN [Suspect]
     Indication: CELLULITIS
     Dosage: 1GM Q24HR IVPB RECENT
     Route: 042
  3. GLIPIZIDE [Concomitant]
  4. METFORMIN HCL [Concomitant]

REACTIONS (4)
  - RENAL FAILURE ACUTE [None]
  - TOE AMPUTATION [None]
  - TOXICITY TO VARIOUS AGENTS [None]
  - DRUG LEVEL INCREASED [None]
